FAERS Safety Report 8123523-0 (Version None)
Quarter: 2012Q1

REPORT INFORMATION
  Report Type: 
  Country: None (occurrence: None)
  Receive Date: 20120208
  Receipt Date: 20120131
  Transmission Date: 20120608
  Serious: Yes (Other)
  Sender: FDA-Public Use
  Company Number: PHHY2010CA32225

PATIENT
  Sex: Female

DRUGS (7)
  1. ZOLEDRONOC ACID [Suspect]
     Indication: OSTEOPOROSIS
     Dosage: 5 MG, ANNUALY
     Route: 042
     Dates: start: 20100112
  2. CALCIUM [Concomitant]
  3. NEXIUM [Concomitant]
     Dosage: 40 MG, DAILY PRN
  4. ZOLEDRONOC ACID [Suspect]
     Route: 042
     Dates: start: 20120101
  5. LIPIDIL [Concomitant]
     Dosage: 145 MG, DAILY
  6. COLACE [Concomitant]
     Dosage: 100 MG 2 BID
  7. VITAMIN D [Concomitant]
     Dosage: 400 UKN, BID

REACTIONS (9)
  - MYALGIA [None]
  - BACK PAIN [None]
  - ARTHRALGIA [None]
  - INFLUENZA LIKE ILLNESS [None]
  - RENAL CANCER [None]
  - NASOPHARYNGITIS [None]
  - INTERVERTEBRAL DISC COMPRESSION [None]
  - PAIN [None]
  - BONE PAIN [None]
